FAERS Safety Report 5138232-X (Version None)
Quarter: 2006Q4

REPORT INFORMATION
  Report Type: 
  Country: None (occurrence: None)
  Receive Date: 20061030
  Receipt Date: 20060731
  Transmission Date: 20070319
  Serious: No
  Sender: FDA-Public Use
  Company Number: US-GLAXOSMITHKLINE-A0614193A

PATIENT
  Age: 80 Year
  Sex: Female

DRUGS (8)
  1. ADVAIR HFA [Suspect]
     Indication: CHRONIC OBSTRUCTIVE PULMONARY DISEASE
     Dosage: 1BLS TWICE PER DAY
     Route: 055
  2. ALBUTEROL [Concomitant]
  3. ALBUTEROL [Concomitant]
  4. ZOCOR [Concomitant]
  5. PREDNISONE TAB [Concomitant]
  6. NEXIUM [Concomitant]
  7. EYE DROPS [Concomitant]
  8. NASAL SPRAY [Concomitant]

REACTIONS (1)
  - APHONIA [None]
